FAERS Safety Report 5444124-9 (Version None)
Quarter: 2007Q4

REPORT INFORMATION
  Report Type: 
  Country: None (occurrence: None)
  Receive Date: 20070831
  Receipt Date: 20070821
  Transmission Date: 20080405
  Serious: Yes (Hospitalization)
  Sender: FDA-Public Use
  Company Number: 2007SP015637

PATIENT
  Age: 28 Year
  Sex: Male
  Weight: 58 kg

DRUGS (2)
  1. CLARITIN (LOATADINE) (LOATADINE) [Suspect]
     Indication: PRURITUS
     Dosage: 10 MG; PO
     Route: 048
     Dates: end: 20070729
  2. TAVEGYL (NO PREF. NAME) [Suspect]
     Indication: PRURITUS
     Dosage: 1 DF; PO
     Route: 048

REACTIONS (8)
  - CONDITION AGGRAVATED [None]
  - DERMATITIS ATOPIC [None]
  - ERYTHEMA MULTIFORME [None]
  - HEADACHE [None]
  - JOINT SWELLING [None]
  - NO THERAPEUTIC RESPONSE [None]
  - STEVENS-JOHNSON SYNDROME [None]
  - UPPER RESPIRATORY TRACT INFLAMMATION [None]
